FAERS Safety Report 10226612 (Version 1)
Quarter: 2014Q2

REPORT INFORMATION
  Report Type: Spontaneous
  Country: US (occurrence: US)
  Receive Date: 20140609
  Receipt Date: 20140609
  Transmission Date: 20141212
  Serious: No
  Sender: FDA-Public Use
  Company Number: US-AMGEN INC.-USASP2014024279

PATIENT
  Age: 62 Year
  Sex: Male
  Weight: 70.3 kg

DRUGS (4)
  1. PROCRIT [Suspect]
     Indication: ANAEMIA
     Dosage: 40000 UNIT, QWK
     Route: 042
     Dates: start: 20130626
  2. GEMCITABINE [Concomitant]
     Indication: CHEMOTHERAPY
     Dosage: 1000 MG, 1 WEEK AFTER CHEMO
     Route: 042
     Dates: start: 201403
  3. ZOFRAN                             /00955301/ [Concomitant]
     Indication: PROPHYLAXIS
     Dosage: 16 MG, WHEN GET CHEMO
     Route: 042
     Dates: start: 20140310
  4. AVASTIN                            /00848101/ [Concomitant]
     Indication: CHEMOTHERAPY
     Dosage: 1000 MG, EVERY THIRD WEEK
     Route: 042
     Dates: start: 20130619, end: 20131029

REACTIONS (4)
  - Pain [Not Recovered/Not Resolved]
  - Peripheral swelling [Recovering/Resolving]
  - Erythema [Recovering/Resolving]
  - Mobility decreased [Not Recovered/Not Resolved]
